FAERS Safety Report 4636815-4 (Version None)
Quarter: 2005Q2

REPORT INFORMATION
  Report Type: 
  Country: None (occurrence: None)
  Receive Date: 20050414
  Receipt Date: 20050405
  Transmission Date: 20051028
  Serious: Yes (Death, Hospitalization)
  Sender: FDA-Public Use
  Company Number: 200510122BVD

PATIENT
  Age: 83 Year
  Sex: Male

DRUGS (4)
  1. AVALOX (MOXIFLOXACIN HYDROCHLORIDE) [Suspect]
     Indication: INFECTION
     Dosage: 400 MG, QD, ORAL
     Route: 048
     Dates: start: 20050131, end: 20050206
  2. ENALAPRIL [Concomitant]
  3. LIPIDIL [Concomitant]
  4. CLAUDICAT [Concomitant]

REACTIONS (4)
  - HEPATIC ENCEPHALOPATHY [None]
  - HEPATIC FAILURE [None]
  - METASTASES TO LIVER [None]
  - NEOPLASM MALIGNANT [None]
